FAERS Safety Report 19662935 (Version 1)
Quarter: 2021Q3

REPORT INFORMATION
  Report Type: Spontaneous
  Country: JP (occurrence: JP)
  Receive Date: 20210805
  Receipt Date: 20210805
  Transmission Date: 20211014
  Serious: Yes (Hospitalization, Other)
  Sender: FDA-Public Use
  Company Number: JP-PFIZER INC-202100967575

PATIENT

DRUGS (1)
  1. PREMARIN [Suspect]
     Active Substance: ESTROGENS, CONJUGATED
     Indication: INFERTILITY
     Dosage: 4 TABLETS IN 2 DIVIDED DOSES
     Route: 048

REACTIONS (2)
  - Subclavian vein thrombosis [Unknown]
  - Off label use [Unknown]
